FAERS Safety Report 11012028 (Version 2)
Quarter: 2015Q2

REPORT INFORMATION
  Report Type: Spontaneous
  Country: US (occurrence: US)
  Receive Date: 20150410
  Receipt Date: 20150525
  Transmission Date: 20150821
  Serious: No
  Sender: FDA-Public Use
  Company Number: US-JNJFOC-20140705783

PATIENT
  Age: 27 Year
  Sex: Female
  Weight: 74.39 kg

DRUGS (9)
  1. YAZ [Concomitant]
     Active Substance: DROSPIRENONE\ETHINYL ESTRADIOL
     Route: 065
  2. UCERIS [Concomitant]
     Active Substance: BUDESONIDE
     Route: 042
  3. FLAGYL [Concomitant]
     Active Substance: METRONIDAZOLE\METRONIDAZOLE HYDROCHLORIDE
     Route: 065
  4. LEVICIN [Concomitant]
     Route: 065
  5. ALLEGRA [Concomitant]
     Active Substance: FEXOFENADINE HYDROCHLORIDE
     Route: 065
  6. REMICADE [Suspect]
     Active Substance: INFLIXIMAB
     Indication: COLITIS ULCERATIVE
     Route: 042
     Dates: start: 2013, end: 201407
  7. SERTRALINE [Concomitant]
     Active Substance: SERTRALINE HYDROCHLORIDE
     Route: 065
  8. NASONEX [Concomitant]
     Active Substance: MOMETASONE FUROATE
     Route: 065
  9. LIALDA [Concomitant]
     Active Substance: MESALAMINE
     Route: 065

REACTIONS (7)
  - Adverse drug reaction [Recovered/Resolved]
  - Drug specific antibody present [Unknown]
  - Anxiety [Unknown]
  - Infusion related reaction [Unknown]
  - Urticaria [Recovered/Resolved]
  - Throat tightness [Unknown]
  - Vomiting [Unknown]

NARRATIVE: CASE EVENT DATE: 20140707
